FAERS Safety Report 5594324-2 (Version None)
Quarter: 2008Q1

REPORT INFORMATION
  Report Type: 
  Country: None (occurrence: None)
  Receive Date: 20080117
  Receipt Date: 20080109
  Transmission Date: 20080703
  Serious: Yes (Other)
  Sender: FDA-Public Use
  Company Number: PHHY2008JP00585

PATIENT
  Sex: Female

DRUGS (1)
  1. DICLOFENAC SODIUM [Suspect]
     Indication: BACK PAIN
     Dosage: 50 MG / DAY
     Route: 054
     Dates: start: 19970101

REACTIONS (6)
  - DIARRHOEA [None]
  - GASTROINTESTINAL EROSION [None]
  - HAEMOGLOBIN DECREASED [None]
  - PSEUDODIVERTICULAR DISEASE [None]
  - RECTAL STENOSIS [None]
  - RECTAL ULCER [None]
